FAERS Safety Report 9384192 (Version 1)
Quarter: 2013Q3

REPORT INFORMATION
  Report Type: Spontaneous
  Country: US (occurrence: None)
  Receive Date: 20130702
  Receipt Date: 20130702
  Transmission Date: 20140515
  Serious: Yes (Life-Threatening, Hospitalization)
  Sender: FDA-Public Use
  Company Number: None

PATIENT
  Age: 74 Year
  Sex: Female
  Weight: 77.3 kg

DRUGS (2)
  1. DARIFENACIN [Suspect]
     Indication: BLADDER DYSFUNCTION
     Dosage: MOST RECENT ADDITION
     Route: 048
  2. LISINOPRIL [Suspect]
     Indication: HYPERTENSION
     Dosage: YEARS
     Route: 048

REACTIONS (1)
  - Angioedema [None]
